FAERS Safety Report 7031555-9 (Version None)
Quarter: 2010Q4

REPORT INFORMATION
  Report Type: 
  Country: None (occurrence: None)
  Receive Date: 20101006
  Receipt Date: 20100924
  Transmission Date: 20110411
  Serious: Yes (Other)
  Sender: FDA-Public Use
  Company Number: DE-GENENTECH-301759

PATIENT
  Sex: Male
  Weight: 75 kg

DRUGS (2)
  1. XOLAIR [Suspect]
     Indication: ASTHMA
     Dosage: 150 MG, Q2W
     Dates: start: 20090901
  2. BECLOMETASONE DIPROPIONATE [Concomitant]
     Indication: PRODUCT USED FOR UNKNOWN INDICATION

REACTIONS (6)
  - CHILLS [None]
  - DIARRHOEA [None]
  - DYSGEUSIA [None]
  - PAROSMIA [None]
  - SOMNOLENCE [None]
  - WEIGHT DECREASED [None]
